FAERS Safety Report 4555263-9 (Version None)
Quarter: 2004Q4

REPORT INFORMATION
  Report Type: 
  Country: None (occurrence: None)
  Receive Date: 20041227
  Receipt Date: 20040908
  Transmission Date: 20050328
  Serious: No
  Sender: FDA-Public Use
  Company Number: 04P-163-0272727-00

PATIENT
  Age: 66 Year
  Sex: Male

DRUGS (5)
  1. HUMIRA [Suspect]
     Indication: RHEUMATOID ARTHRITIS
     Dosage: 40 MG, 1 IN 2 WK, SUBCUTANEOUS
     Route: 058
     Dates: start: 20040823, end: 20040908
  2. METHOTREXATE [Concomitant]
  3. PRAVASTATIN SODIUM [Concomitant]
  4. LISINOPRIL [Concomitant]
  5. FOLIC ACID [Concomitant]

REACTIONS (5)
  - ARTHRITIS [None]
  - RASH [None]
  - SPEECH DISORDER [None]
  - SWELLING FACE [None]
  - URTICARIA [None]
